FAERS Safety Report 7296974-4 (Version None)
Quarter: 2011Q1

REPORT INFORMATION
  Report Type: 
  Country: None (occurrence: None)
  Receive Date: 20110216
  Receipt Date: 20110202
  Transmission Date: 20110831
  Serious: Yes (Other)
  Sender: FDA-Public Use
  Company Number: FR-GENENTECH-313671

PATIENT
  Sex: Female

DRUGS (3)
  1. LUCENTIS [Suspect]
     Dosage: UNK
     Route: 031
     Dates: start: 20100701
  2. LUCENTIS [Suspect]
     Indication: PRODUCT USED FOR UNKNOWN INDICATION
     Route: 031
  3. ISOPTIN [Concomitant]
     Indication: HYPERTENSION

REACTIONS (1)
  - CEREBROVASCULAR ACCIDENT [None]
